FAERS Safety Report 10080075 (Version 1)
Quarter: 2014Q2

REPORT INFORMATION
  Report Type: Spontaneous
  Country: US (occurrence: US)
  Receive Date: 20140415
  Receipt Date: 20140415
  Transmission Date: 20141212
  Serious: Yes (Hospitalization, Other)
  Sender: FDA-Public Use
  Company Number: US-ABBVIE-14P-163-1223821-00

PATIENT
  Age: 56 Year
  Sex: Male
  Weight: 113.5 kg

DRUGS (2)
  1. VICODIN [Suspect]
     Indication: BACK PAIN
     Dates: start: 1986
  2. ASPIRIN [Suspect]
     Indication: HEADACHE
     Dates: end: 201304

REACTIONS (9)
  - Dyspnoea [Recovered/Resolved]
  - Atrial fibrillation [Not Recovered/Not Resolved]
  - Apnoea [Recovered/Resolved]
  - Headache [Not Recovered/Not Resolved]
  - Respiration abnormal [Recovered/Resolved]
  - Dyspnoea [Recovered/Resolved]
  - Anosmia [Recovered/Resolved]
  - Drug administration error [Recovered/Resolved]
  - Asthma [Recovered/Resolved]
